FAERS Safety Report 4665222-3 (Version None)
Quarter: 2005Q2

REPORT INFORMATION
  Report Type: 
  Country: None (occurrence: None)
  Receive Date: 20050517
  Receipt Date: 20050502
  Transmission Date: 20051028
  Serious: Yes (Hospitalization, Other)
  Sender: FDA-Public Use
  Company Number: USA050392234

PATIENT
  Age: 84 Year
  Sex: Female

DRUGS (1)
  1. FORTEO [Suspect]
     Indication: OSTEOPOROSIS
     Dates: start: 20041004

REACTIONS (6)
  - ACCIDENT AT HOME [None]
  - ANAEMIA [None]
  - FALL [None]
  - HIP FRACTURE [None]
  - HYPONATRAEMIA [None]
  - MENTAL STATUS CHANGES [None]
